FAERS Safety Report 5475026-X (Version None)
Quarter: 2007Q4

REPORT INFORMATION
  Report Type: 
  Country: None (occurrence: None)
  Receive Date: 20071002
  Receipt Date: 20070920
  Transmission Date: 20080405
  Serious: Yes (Hospitalization)
  Sender: FDA-Public Use
  Company Number: SE-ELI_LILLY_AND_COMPANY-SE200709005107

PATIENT
  Age: 25 Year
  Sex: Male

DRUGS (3)
  1. HUMULIN N [Suspect]
     Dosage: MORNING + EVENING
  2. HUMALOG [Suspect]
     Indication: DIABETES MELLITUS
     Dosage: LUNCH TIME
  3. HUMULIN R [Concomitant]

REACTIONS (3)
  - DIABETIC KETOACIDOSIS [None]
  - DRUG HYPERSENSITIVITY [None]
  - KETOACIDOSIS [None]
